FAERS Safety Report 16905287 (Version 1)
Quarter: 2019Q4

REPORT INFORMATION
  Report Type: Spontaneous
  Country: US (occurrence: US)
  Receive Date: 20191010
  Receipt Date: 20191010
  Transmission Date: 20200122
  Serious: No
  Sender: FDA-Public Use
  Company Number: US-SA-2019SA275235

PATIENT
  Sex: Female

DRUGS (1)
  1. DUPIXENT [Suspect]
     Active Substance: DUPILUMAB
     Indication: DERMATITIS ATOPIC
     Dosage: 300 MG, QOW
     Route: 058
     Dates: start: 20190709

REACTIONS (7)
  - Ocular hyperaemia [Recovering/Resolving]
  - Product dose omission [Unknown]
  - Lacrimation increased [Recovering/Resolving]
  - Eye discharge [Recovering/Resolving]
  - Eye pruritus [Recovering/Resolving]
  - Dermatitis atopic [Unknown]
  - Eye inflammation [Recovering/Resolving]
